FAERS Safety Report 19037236 (Version 1)
Quarter: 2021Q1

REPORT INFORMATION
  Report Type: Spontaneous
  Country: CA (occurrence: CA)
  Receive Date: 20210322
  Receipt Date: 20210322
  Transmission Date: 20210420
  Serious: Yes (Other)
  Sender: FDA-Public Use
  Company Number: CA-JNJFOC-20210331702

PATIENT
  Age: 56 Year
  Sex: Female
  Weight: 85 kg

DRUGS (2)
  1. INFLIXIMAB, RECOMBINANT [Suspect]
     Active Substance: INFLIXIMAB
     Indication: UVEITIS
     Route: 042
  2. METHOTREXATE. [Concomitant]
     Active Substance: METHOTREXATE
     Route: 048

REACTIONS (14)
  - Influenza [Unknown]
  - SARS-CoV-2 test negative [Unknown]
  - Product use in unapproved indication [Unknown]
  - Suspected COVID-19 [Unknown]
  - Dry eye [Unknown]
  - Blood pressure systolic increased [Unknown]
  - Deafness [Unknown]
  - Visual impairment [Unknown]
  - Condition aggravated [Unknown]
  - Off label use [Unknown]
  - Eye pain [Unknown]
  - Malaise [Unknown]
  - Body temperature decreased [Unknown]
  - Fatigue [Unknown]
